FAERS Safety Report 8586827 (Version 3)
Quarter: 2012Q4

REPORT INFORMATION
  Report Type: 
  Country: US (occurrence: US)
  Receive Date: 20120530
  Receipt Date: 20120927
  Transmission Date: 20130627
  Serious: No
  Sender: FDA-Public Use
  Company Number: US-PFIZER INC-2012127250

PATIENT
  Age: 57 Year
  Sex: Female
  Weight: 97.51 kg

DRUGS (6)
  1. XALATAN [Suspect]
     Indication: GLAUCOMA
     Dosage: UNK, once a day every night (QHS)
     Route: 061
     Dates: end: 20120301
  2. LATANOPROST [Suspect]
     Indication: GLAUCOMA
     Dosage: UNK, 1x/day
     Route: 047
     Dates: start: 201203, end: 201204
  3. LATANOPROST [Suspect]
     Indication: GLAUCOMA
     Dosage: UNK, 1x/day
     Route: 047
     Dates: start: 201204
  4. IRBESARTAN [Concomitant]
     Indication: HYPERTENSION
     Dosage: UNK
  5. HYDROCHLOROTHIAZIDE WITH TRIAMTERENE [Concomitant]
     Dosage: UNK
  6. METFORMIN [Concomitant]
     Dosage: UNK

REACTIONS (7)
  - Arthritis [Unknown]
  - Alopecia [Unknown]
  - Muscular weakness [Unknown]
  - Eye swelling [Not Recovered/Not Resolved]
  - Headache [Not Recovered/Not Resolved]
  - Blepharospasm [Not Recovered/Not Resolved]
  - Blood cholesterol increased [Unknown]
